FAERS Safety Report 8080215-4 (Version None)
Quarter: 2012Q1

REPORT INFORMATION
  Report Type: 
  Country: None (occurrence: None)
  Receive Date: 20120130
  Receipt Date: 20120116
  Transmission Date: 20120608
  Serious: No
  Sender: FDA-Public Use
  Company Number: US-BAYER-2012-008971

PATIENT
  Age: 73 Year
  Sex: Female
  Weight: 74.84 kg

DRUGS (7)
  1. RIVAROXABAN [Suspect]
     Indication: ATRIAL FIBRILLATION
     Dosage: DOSAGE FORM: TABLET
     Route: 048
     Dates: start: 20120110
  2. ACETYLSALICYLIC ACID SRT [Suspect]
     Indication: ATRIAL FIBRILLATION
     Dosage: DOSAGE FORM: TABLET
     Route: 048
     Dates: start: 20120110, end: 20120113
  3. WARFARIN SODIUM [Concomitant]
     Indication: ATRIAL FIBRILLATION
     Dosage: DOSAGE FORM: TABLET
     Route: 048
     Dates: start: 20090101
  4. METOPROLOL TARTRATE [Concomitant]
     Indication: BLOOD PRESSURE ABNORMAL
     Dates: start: 20110101
  5. FUROSEMIDE [Concomitant]
     Indication: BLOOD PRESSURE ABNORMAL
     Dosage: DOSAGE FORM: TABLET
     Route: 048
  6. RIVAROXABAN [Suspect]
     Indication: KNEE OPERATION
     Dosage: DOSAGE FORM: TABLET
     Route: 048
     Dates: start: 20120110
  7. LISINOPRIL [Concomitant]
     Indication: BLOOD PRESSURE ABNORMAL
     Dosage: DOSAGE FORM: TABLET, 10/12.5 MG DAILY
     Route: 048

REACTIONS (1)
  - DIARRHOEA [None]
